FAERS Safety Report 7784590-7 (Version None)
Quarter: 2011Q3

REPORT INFORMATION
  Report Type: 
  Country: None (occurrence: None)
  Receive Date: 20110928
  Receipt Date: 20110920
  Transmission Date: 20111222
  Serious: Yes (Death)
  Sender: FDA-Public Use
  Company Number: JP-CELGENEUS-087-50794-11083516

PATIENT
  Sex: Female
  Weight: 30 kg

DRUGS (7)
  1. ORGARAN [Concomitant]
     Indication: HYPOTHYROIDISM
     Route: 041
     Dates: start: 20110804, end: 20110805
  2. ACETAMINOPHEN [Concomitant]
     Dosage: 8 DF/DAY
     Route: 048
  3. AZUNOL [Concomitant]
     Route: 061
  4. LEVOTHYROXINE [Concomitant]
     Route: 041
  5. LEVOTHYROXINE SODIUM [Concomitant]
     Indication: HYPOTHYROIDISM
     Dosage: 1 DF/DAY
     Route: 048
  6. VIDAZA [Suspect]
     Dosage: 100 MILLIGRAM
     Route: 058
     Dates: start: 20110802, end: 20110804
  7. RINDERON VG [Concomitant]
     Route: 065

REACTIONS (1)
  - BRAIN STEM INFARCTION [None]
